FAERS Safety Report 8123402-9 (Version None)
Quarter: 2012Q1

REPORT INFORMATION
  Report Type: 
  Country: None (occurrence: None)
  Receive Date: 20120208
  Receipt Date: 20120201
  Transmission Date: 20120608
  Serious: Yes (Other)
  Sender: FDA-Public Use
  Company Number: JP-VERTEX PHARMACEUTICALS INC.-AE-2012-001804

PATIENT
  Age: 74 Year
  Sex: Female

DRUGS (5)
  1. REBETOL [Concomitant]
     Route: 048
     Dates: start: 20120124, end: 20120131
  2. TELAVIC (TELAPREVIR) [Suspect]
     Route: 048
     Dates: start: 20120124, end: 20120131
  3. PEGINTERFERON ALFA-2B [Concomitant]
     Route: 051
  4. ZOLPIDEM [Concomitant]
     Route: 048
     Dates: start: 20120124
  5. CONIEL [Concomitant]
     Route: 048
     Dates: start: 20120124, end: 20120131

REACTIONS (1)
  - RENAL FAILURE ACUTE [None]
